FAERS Safety Report 13490391 (Version 5)
Quarter: 2019Q2

REPORT INFORMATION
  Report Type: Report from Study
  Country: US (occurrence: US)
  Receive Date: 20170427
  Receipt Date: 20190423
  Transmission Date: 20190711
  Serious: Yes (Other)
  Sender: FDA-Public Use
  Company Number: US-SA-2017SA073359

PATIENT
  Age: 61 Year
  Sex: Male

DRUGS (3)
  1. METFORMIN [Concomitant]
     Active Substance: METFORMIN HYDROCHLORIDE
     Dosage: UNK
  2. INSULIN GLARGINE [Suspect]
     Active Substance: INSULIN GLARGINE
     Indication: TYPE 2 DIABETES MELLITUS
     Dosage: 25-30/ 15-20,BID
     Route: 058
     Dates: start: 1997
  3. GLUCOPHAGE [Concomitant]
     Active Substance: METFORMIN HYDROCHLORIDE
     Dosage: UNK

REACTIONS (10)
  - Visual impairment [Unknown]
  - Thrombosis [Unknown]
  - Palpitations [Not Recovered/Not Resolved]
  - Glycosylated haemoglobin decreased [Unknown]
  - Inappropriate schedule of product administration [Unknown]
  - Hyperglycaemia [Unknown]
  - Myocardial infarction [Unknown]
  - Dysphonia [Unknown]
  - Hypoglycaemia [Unknown]
  - Product storage error [Unknown]

NARRATIVE: CASE EVENT DATE: 1997
